FAERS Safety Report 5055223-8 (Version None)
Quarter: 2006Q3

REPORT INFORMATION
  Report Type: 
  Country: None (occurrence: None)
  Receive Date: 20060714
  Receipt Date: 20060703
  Transmission Date: 20061208
  Serious: Yes (Death)
  Sender: FDA-Public Use
  Company Number: HQWYE574930JAN06

PATIENT
  Age: 63 Year
  Sex: Female

DRUGS (5)
  1. GEMTUZUMAB OZOGAMICIN (GEMTUZUMAB OZOGAMICIN, INJECTION) [Suspect]
     Dosage: 10 MG
     Route: 042
     Dates: start: 20041229, end: 20041229
  2. CYTARABINE [Suspect]
     Dosage: 170 MG; CUMULATIVE DOSE 1190
     Dates: start: 20050111, end: 20050117
  3. ETOPOSIDE [Suspect]
     Dosage: DOSE 170 MG; CUMULATIVE DOSE 510 MG
     Dates: start: 20050111, end: 20050113
  4. NOVANTRONE [Suspect]
     Dosage: DOSE 12MG; CUMULATIVE DOSE 36 MG
     Dates: start: 20050111, end: 20050115
  5. LEVOFLOXACIN [Concomitant]

REACTIONS (7)
  - BLOOD PH INCREASED [None]
  - HAEMOGLOBIN DECREASED [None]
  - LUNG INFECTION [None]
  - PLATELET COUNT DECREASED [None]
  - RED BLOOD CELL COUNT DECREASED [None]
  - RESPIRATORY FAILURE [None]
  - STAPHYLOCOCCAL INFECTION [None]
